FAERS Safety Report 7592033-1 (Version None)
Quarter: 2011Q3

REPORT INFORMATION
  Report Type: 
  Country: None (occurrence: None)
  Receive Date: 20110705
  Receipt Date: 20110705
  Transmission Date: 20111222
  Serious: Yes (Hospitalization)
  Sender: FDA-Public Use
  Company Number: None

PATIENT
  Sex: Male
  Weight: 18.1 kg

DRUGS (4)
  1. VINCRISTINE SULFATE [Suspect]
     Dosage: 3.3 MG
     Dates: end: 20110523
  2. METHOTREXATE [Suspect]
     Dosage: 132 MG
     Dates: end: 20110620
  3. PREDNISONE [Suspect]
     Dosage: 450 MG
     Dates: end: 20110620
  4. MERCAPTOPURINE [Suspect]
     Dosage: 4300 MG
     Dates: end: 20110701

REACTIONS (5)
  - FEELING COLD [None]
  - PHYSICAL EXAMINATION ABNORMAL [None]
  - COLD SWEAT [None]
  - HYPOTENSION [None]
  - SOMNOLENCE [None]
